FAERS Safety Report 23688338 (Version 3)
Quarter: 2024Q2

REPORT INFORMATION
  Report Type: Spontaneous
  Country: US (occurrence: US)
  Receive Date: 20240329
  Receipt Date: 20240626
  Transmission Date: 20240716
  Serious: No
  Sender: FDA-Public Use
  Company Number: US-BRISTOL-MYERS SQUIBB COMPANY-2024-050858

PATIENT
  Age: 32 Year
  Sex: Male
  Weight: 47.17 kg

DRUGS (6)
  1. OPDIVO [Suspect]
     Active Substance: NIVOLUMAB
     Indication: Squamous cell carcinoma of skin
     Dosage: VIALS
     Route: 042
  2. OPDIVO [Suspect]
     Active Substance: NIVOLUMAB
     Dosage: VIALS
     Route: 042
  3. OPDIVO [Suspect]
     Active Substance: NIVOLUMAB
     Dosage: 240 MG VIAL
     Route: 042
     Dates: end: 20240425
  4. YERVOY [Suspect]
     Active Substance: IPILIMUMAB
     Indication: Squamous cell carcinoma of skin
     Dosage: VIALS
     Route: 042
  5. YERVOY [Suspect]
     Active Substance: IPILIMUMAB
     Dosage: VIALS
     Route: 042
  6. YERVOY [Suspect]
     Active Substance: IPILIMUMAB
     Dosage: 200 MG VIAL
     Route: 042
     Dates: end: 20240403

REACTIONS (2)
  - Weight decreased [Unknown]
  - Off label use [Unknown]
